FAERS Safety Report 8501899-X (Version None)
Quarter: 2012Q3

REPORT INFORMATION
  Report Type: 
  Country: None (occurrence: None)
  Receive Date: 20120711
  Receipt Date: 20120706
  Transmission Date: 20120928
  Serious: Yes (Other)
  Sender: FDA-Public Use
  Company Number: PHHY2012JP011064

PATIENT
  Sex: Female

DRUGS (1)
  1. PARLODEL [Suspect]
     Indication: TONGUE DISORDER
     Dosage: UNK
     Route: 048
     Dates: start: 20120116

REACTIONS (5)
  - CYSTITIS [None]
  - VAGINAL DISCHARGE [None]
  - HAEMATURIA [None]
  - TONGUE DISORDER [None]
  - HAEMORRHAGE [None]
